FAERS Safety Report 9298230 (Version 1)
Quarter: 2013Q2

REPORT INFORMATION
  Report Type: Spontaneous
  Country: US (occurrence: US)
  Receive Date: 20130520
  Receipt Date: 20130520
  Transmission Date: 20140414
  Serious: Yes (Other)
  Sender: FDA-Public Use
  Company Number: US-SANOFI-AVENTIS-2013SA049663

PATIENT
  Sex: Male

DRUGS (2)
  1. AUBAGIO [Suspect]
     Indication: MULTIPLE SCLEROSIS
  2. COPAXONE [Concomitant]

REACTIONS (2)
  - Multiple sclerosis relapse [Unknown]
  - Gait disturbance [Unknown]
